FAERS Safety Report 18365542 (Version 2)
Quarter: 2022Q2

REPORT INFORMATION
  Report Type: Spontaneous
  Country: US (occurrence: US)
  Receive Date: 20201009
  Receipt Date: 20220518
  Transmission Date: 20220721
  Serious: Yes (Other)
  Sender: FDA-Public Use
  Company Number: US-SAARTEMIS-SAC202010060648

PATIENT
  Age: 42 Year
  Sex: Male

DRUGS (2)
  1. ZANTAC [Suspect]
     Active Substance: RANITIDINE HYDROCHLORIDE
     Indication: Dyspepsia
     Dosage: 75 MG, QD
     Dates: start: 201411
  2. ZANTAC [Suspect]
     Active Substance: RANITIDINE HYDROCHLORIDE
     Dosage: 150 MG, QD
     Dates: end: 201707

REACTIONS (8)
  - Bladder cancer stage III [Not Recovered/Not Resolved]
  - Disease progression [Not Recovered/Not Resolved]
  - Hepatic cancer stage III [Not Recovered/Not Resolved]
  - Disease progression [Not Recovered/Not Resolved]
  - Lung carcinoma cell type unspecified stage III [Not Recovered/Not Resolved]
  - Disease progression [Not Recovered/Not Resolved]
  - Gastric cancer stage III [Not Recovered/Not Resolved]
  - Disease progression [Not Recovered/Not Resolved]

NARRATIVE: CASE EVENT DATE: 20170701
